FAERS Safety Report 18364936 (Version 1)
Quarter: 2020Q4

REPORT INFORMATION
  Report Type: Spontaneous
  Country: US (occurrence: US)
  Receive Date: 20201009
  Receipt Date: 20201009
  Transmission Date: 20210114
  Serious: No
  Sender: FDA-Public Use
  Company Number: US-BAYER-2020-205896

PATIENT
  Age: 29 Year
  Sex: Female
  Weight: 104.31 kg

DRUGS (2)
  1. GADAVIST [Suspect]
     Active Substance: GADOBUTROL
     Indication: MAGNETIC RESONANCE IMAGING LIVER
     Dosage: 10 ML, ONCE
     Route: 042
     Dates: start: 20200917, end: 20200917
  2. GADAVIST [Suspect]
     Active Substance: GADOBUTROL
     Indication: HEPATIC MASS

REACTIONS (4)
  - Drug clearance decreased [None]
  - Off label use [None]
  - Product use in unapproved indication [None]
  - Magnetic resonance imaging abnormal [None]

NARRATIVE: CASE EVENT DATE: 20200917
